FAERS Safety Report 14967148 (Version 1)
Quarter: 2018Q2

REPORT INFORMATION
  Report Type: Spontaneous
  Country: GB (occurrence: GB)
  Receive Date: 20180604
  Receipt Date: 20180604
  Transmission Date: 20180711
  Serious: Yes (Life-Threatening, Other)
  Sender: FDA-Public Use
  Company Number: GB-CHEPLA-C20170809

PATIENT
  Age: 30 Year
  Sex: Female

DRUGS (2)
  1. ATRA [Suspect]
     Active Substance: TRETINOIN
     Indication: ACUTE PROMYELOCYTIC LEUKAEMIA
     Route: 065
  2. GEMTUZUMAB [Suspect]
     Active Substance: GEMTUZUMAB OZOGAMICIN
     Indication: ACUTE PROMYELOCYTIC LEUKAEMIA
     Route: 065

REACTIONS (7)
  - Neutropenia [Recovered/Resolved]
  - Clostridium difficile colitis [Recovered/Resolved]
  - Fungal infection [Recovered/Resolved]
  - Oral herpes [Recovered/Resolved]
  - Malignant dysphagia [Recovered/Resolved]
  - Trigeminal neuralgia [Recovered/Resolved]
  - Respiratory syncytial virus infection [Recovered/Resolved]
